FAERS Safety Report 17844588 (Version 1)
Quarter: 2020Q2

REPORT INFORMATION
  Report Type: Other
  Country: ES (occurrence: ES)
  Receive Date: 20200601
  Receipt Date: 20200601
  Transmission Date: 20200714
  Serious: Yes (Other)
  Sender: FDA-Public Use
  Company Number: ES-MACLEODS PHARMACEUTICALS US LTD-MAC2020026628

PATIENT

DRUGS (1)
  1. LEVOFLOXACIN TABLET 500 MG [Suspect]
     Active Substance: LEVOFLOXACIN
     Indication: BRONCHITIS
     Dosage: 500 MILLIGRAM, QD
     Route: 048
     Dates: start: 20190104, end: 20190111

REACTIONS (2)
  - Pain in extremity [Recovered/Resolved]
  - Haematoma muscle [Recovered/Resolved]

NARRATIVE: CASE EVENT DATE: 20190108
